FAERS Safety Report 5744402-X (Version None)
Quarter: 2008Q2

REPORT INFORMATION
  Report Type: 
  Country: None (occurrence: None)
  Receive Date: 20080520
  Receipt Date: 20080513
  Transmission Date: 20081010
  Serious: Yes (Hospitalization, Other)
  Sender: FDA-Public Use
  Company Number: US-ELI_LILLY_AND_COMPANY-US200805002410

PATIENT
  Sex: Male

DRUGS (5)
  1. HUMULIN R [Suspect]
  2. HUMULIN R [Suspect]
     Dosage: 1 U, UNK
  3. HUMULIN R [Suspect]
     Dosage: 8 U, UNK
     Dates: start: 20080511, end: 20080511
  4. HUMULIN R [Suspect]
     Dosage: 3 U, UNK
     Dates: start: 20080512, end: 20080512
  5. HUMULIN R [Suspect]
     Dosage: 3 U, UNK

REACTIONS (3)
  - BLOOD GLUCOSE INCREASED [None]
  - DIALYSIS [None]
  - GASTROINTESTINAL INFECTION [None]
